FAERS Safety Report 8146420 (Version 2)
Quarter: 2013Q3

REPORT INFORMATION
  Report Type: Spontaneous
  Country: US (occurrence: US)
  Receive Date: 20110921
  Receipt Date: 20130823
  Transmission Date: 20140515
  Serious: Yes (Other)
  Sender: FDA-Public Use
  Company Number: CHPA2011US12513

PATIENT
  Sex: Female

DRUGS (4)
  1. EXCEDRIN EXTRA STRENGTH [Suspect]
     Indication: ARTHRITIS
     Dosage: 2 DF, TID
     Route: 048
  2. EXCEDRIN EXTRA STRENGTH [Suspect]
     Indication: SOMNOLENCE
  3. AMLODIPINE [Concomitant]
     Indication: ULCER
     Dosage: 10 MG, UNK
  4. AMLODIPINE [Concomitant]
     Indication: GASTROINTESTINAL DISORDER

REACTIONS (3)
  - Drug dependence [Not Recovered/Not Resolved]
  - Drug ineffective for unapproved indication [Unknown]
  - Incorrect drug administration duration [Unknown]
